FAERS Safety Report 11223792 (Version 1)
Quarter: 2015Q2

REPORT INFORMATION
  Report Type: Spontaneous
  Country: US (occurrence: None)
  Receive Date: 20150625
  Receipt Date: 20150625
  Transmission Date: 20150821
  Serious: Yes (Hospitalization)
  Sender: FDA-Public Use
  Company Number: None

PATIENT
  Age: 54 Year
  Sex: Female
  Weight: 78.2 kg

DRUGS (5)
  1. GABAPENTIN. [Concomitant]
     Active Substance: GABAPENTIN
  2. TRAMADOL [Concomitant]
     Active Substance: TRAMADOL
  3. VITAMIN D [Concomitant]
     Active Substance: CHOLECALCIFEROL
  4. HARVONI [Suspect]
     Active Substance: LEDIPASVIR\SOFOSBUVIR
     Indication: CHRONIC HEPATITIS C
     Dosage: 1 TAB DAILY ORAL
     Route: 048
     Dates: start: 20150519
  5. CYMBALTA [Concomitant]
     Active Substance: DULOXETINE HYDROCHLORIDE

REACTIONS (2)
  - Fatigue [None]
  - Pneumonia [None]

NARRATIVE: CASE EVENT DATE: 20150526
